FAERS Safety Report 18187881 (Version 1)
Quarter: 2020Q3

REPORT INFORMATION
  Report Type: Spontaneous
  Country: MX (occurrence: MX)
  Receive Date: 20200824
  Receipt Date: 20200824
  Transmission Date: 20201103
  Serious: Yes (Other)
  Sender: FDA-Public Use
  Company Number: MX-UCBSA-2020031999

PATIENT
  Age: 50 Year
  Sex: Male

DRUGS (1)
  1. CIMZIA [Suspect]
     Active Substance: CERTOLIZUMAB PEGOL
     Indication: ANKYLOSING SPONDYLITIS
     Dosage: 400 MILLIGRAM, EV 4 WEEKS
     Dates: start: 201710, end: 202007

REACTIONS (7)
  - Discomfort [Recovered/Resolved]
  - Hyposmia [Recovered/Resolved]
  - Hypogeusia [Recovered/Resolved]
  - Productive cough [Recovered/Resolved]
  - Throat irritation [Recovered/Resolved]
  - Decreased appetite [Recovered/Resolved]
  - SARS-CoV-2 test positive [Unknown]

NARRATIVE: CASE EVENT DATE: 20200721
